FAERS Safety Report 6174556-5 (Version None)
Quarter: 2009Q2

REPORT INFORMATION
  Report Type: 
  Country: None (occurrence: None)
  Receive Date: 20090430
  Receipt Date: 20080722
  Transmission Date: 20091009
  Serious: No
  Sender: FDA-Public Use
  Company Number: US-ASTRAZENECA-2008UW15235

PATIENT
  Age: 81 Year
  Sex: Male
  Weight: 61.2 kg

DRUGS (9)
  1. NEXIUM [Suspect]
     Indication: DYSPEPSIA
  2. CELEBREX [Concomitant]
  3. WARFARIN [Concomitant]
  4. TOPROL-XL [Concomitant]
  5. MENENDA [Concomitant]
  6. ZOCOR [Concomitant]
  7. GARLIC PILL [Concomitant]
  8. VITAMIN [Concomitant]
  9. LOVAZA [Concomitant]

REACTIONS (1)
  - ABDOMINAL PAIN UPPER [None]
